FAERS Safety Report 23084989 (Version 2)
Quarter: 2024Q1

REPORT INFORMATION
  Report Type: Spontaneous
  Country: IN (occurrence: IN)
  Receive Date: 20231019
  Receipt Date: 20240111
  Transmission Date: 20240410
  Serious: Yes (Other)
  Sender: FDA-Public Use
  Company Number: IN-PFIZER INC-PV202300125862

PATIENT
  Age: 34 Year
  Sex: Female

DRUGS (2)
  1. INOTUZUMAB OZOGAMICIN [Suspect]
     Active Substance: INOTUZUMAB OZOGAMICIN
     Dosage: 1 MG
     Route: 042
     Dates: start: 20230708
  2. INOTUZUMAB OZOGAMICIN [Suspect]
     Active Substance: INOTUZUMAB OZOGAMICIN
     Dosage: 1 MG
     Route: 042
     Dates: start: 20230709

REACTIONS (6)
  - Platelet count decreased [Unknown]
  - Septic shock [Unknown]
  - Blood culture positive [Unknown]
  - Neutropenia [Unknown]
  - Pancreatitis acute [Unknown]
  - Pyrexia [Unknown]
